FAERS Safety Report 4407842-7 (Version None)
Quarter: 2004Q3

REPORT INFORMATION
  Report Type: 
  Country: None (occurrence: None)
  Receive Date: 20040726
  Receipt Date: 20040716
  Transmission Date: 20050211
  Serious: Yes (Hospitalization)
  Sender: FDA-Public Use
  Company Number: FR-GLAXOSMITHKLINE-B0339107A

PATIENT
  Age: 54 Year
  Sex: Male
  Weight: 67 kg

DRUGS (9)
  1. ZOVIRAX [Suspect]
     Dosage: 700MG SEE DOSAGE TEXT
     Route: 042
     Dates: start: 20040603, end: 20040621
  2. AMOXICILLIN [Suspect]
     Dosage: 2G THREE TIMES PER DAY
     Route: 042
     Dates: start: 20040603, end: 20040621
  3. PROPOFOL [Suspect]
     Route: 042
     Dates: start: 20040620, end: 20040621
  4. ETHAMBUTOL HCL [Concomitant]
     Dates: start: 20040611
  5. PIRILENE [Concomitant]
     Route: 048
     Dates: start: 20040611
  6. RIMIFON [Concomitant]
     Route: 048
     Dates: start: 20040611
  7. RIFAMPICINE [Concomitant]
     Dates: start: 20040611
  8. DEPAKENE [Concomitant]
     Route: 048
     Dates: start: 20040611
  9. INEXIUM [Concomitant]

REACTIONS (5)
  - BLOOD CREATININE INCREASED [None]
  - BLOOD POTASSIUM DECREASED [None]
  - BLOOD SODIUM INCREASED [None]
  - BLOOD UREA INCREASED [None]
  - RENAL FAILURE ACUTE [None]
